FAERS Safety Report 19091764 (Version 1)
Quarter: 2021Q2

REPORT INFORMATION
  Report Type: Spontaneous
  Country: JP (occurrence: JP)
  Receive Date: 20210405
  Receipt Date: 20210405
  Transmission Date: 20210717
  Serious: Yes (Other)
  Sender: FDA-Public Use
  Company Number: JP-AUROBINDO-AUR-APL-2021-013302

PATIENT
  Sex: Male

DRUGS (5)
  1. CYTARABINE. [Suspect]
     Active Substance: CYTARABINE
     Indication: NEOPLASM PROPHYLAXIS
     Dosage: 200 MG/M2
     Route: 041
  2. RITUXIMAB. [Suspect]
     Active Substance: RITUXIMAB
     Indication: NEOPLASM PROPHYLAXIS
     Dosage: 375 MG/M2
     Route: 041
  3. RANIMUSTINE [Suspect]
     Active Substance: RANIMUSTINE
     Indication: NEOPLASM PROPHYLAXIS
     Dosage: 300 MG/M2
     Route: 041
  4. MELPHALAN. [Suspect]
     Active Substance: MELPHALAN
     Indication: NEOPLASM PROPHYLAXIS
     Dosage: 70 MG/M2
     Route: 041
  5. ETOPOSIDE. [Suspect]
     Active Substance: ETOPOSIDE
     Indication: NEOPLASM PROPHYLAXIS
     Dosage: 200 MG/M2
     Route: 041

REACTIONS (5)
  - Anaemia [Unknown]
  - Thrombocytopenia [Recovered/Resolved]
  - Off label use [Unknown]
  - Leukopenia [Recovered/Resolved]
  - Febrile neutropenia [Recovering/Resolving]
